FAERS Safety Report 14955646 (Version 1)
Quarter: 2018Q2

REPORT INFORMATION
  Report Type: Spontaneous
  Country: MX (occurrence: MX)
  Receive Date: 20180531
  Receipt Date: 20180531
  Transmission Date: 20180711
  Serious: Yes (Death, Other)
  Sender: FDA-Public Use
  Company Number: MX-ABBVIE-18K-107-2372815-00

PATIENT
  Sex: Male

DRUGS (1)
  1. VENCLEXTA [Suspect]
     Active Substance: VENETOCLAX
     Indication: CHRONIC LYMPHOCYTIC LEUKAEMIA
     Route: 048
     Dates: start: 20180512

REACTIONS (2)
  - Pneumonia [Unknown]
  - Death [Fatal]

NARRATIVE: CASE EVENT DATE: 201805
